FAERS Safety Report 9454462 (Version 1)
Quarter: 2013Q3

REPORT INFORMATION
  Report Type: Spontaneous
  Country: US (occurrence: US)
  Receive Date: 20130812
  Receipt Date: 20130812
  Transmission Date: 20140515
  Serious: Yes (Hospitalization)
  Sender: FDA-Public Use
  Company Number: US-GLAXOSMITHKLINE-A0903053A

PATIENT
  Age: 68 Year
  Sex: Male
  Weight: 92.3 kg

DRUGS (6)
  1. AVANDIA [Suspect]
     Indication: DIABETES MELLITUS
     Dosage: 8MG PER DAY
     Route: 048
     Dates: start: 200705, end: 20090404
  2. METOPROLOL [Concomitant]
  3. SIMVASTATIN [Concomitant]
  4. AVAPRO [Concomitant]
  5. GLYBURIDE [Concomitant]
  6. ASPIRIN [Concomitant]

REACTIONS (1)
  - Cerebrovascular accident [Unknown]
